FAERS Safety Report 8214444-3 (Version None)
Quarter: 2012Q1

REPORT INFORMATION
  Report Type: 
  Country: None (occurrence: None)
  Receive Date: 20120316
  Receipt Date: 20120305
  Transmission Date: 20120608
  Serious: Yes (Hospitalization)
  Sender: FDA-Public Use
  Company Number: US-ELI_LILLY_AND_COMPANY-US201203001585

PATIENT
  Sex: Female

DRUGS (13)
  1. VITAMIN B-12 [Concomitant]
     Dosage: 2500 UG, QD
  2. CELEXA [Concomitant]
     Dosage: 20 MG, QD
  3. RELPAX [Concomitant]
     Indication: MIGRAINE
     Dosage: 40 MG, PRN
  4. CALCIUM [Concomitant]
     Dosage: 1400 MG, TID
  5. FORTEO [Suspect]
     Indication: OSTEOPOROSIS
     Dosage: 20 UG, QD
     Route: 065
     Dates: start: 20120201
  6. WARFARIN SODIUM [Concomitant]
     Dosage: 7.5 MG, QD
  7. MULTI-VITAMIN [Concomitant]
  8. VITAMIN D [Concomitant]
  9. IRON [Concomitant]
     Dosage: 325 MG, QD
  10. PROTEINS NOS [Concomitant]
     Dosage: UNK, 4/W
  11. HYDROCODONE BITARTRATE [Concomitant]
     Indication: PAIN
     Dosage: 1 DF, PRN UP TO EVERY 4 HOUR
  12. TOPIRAMATE [Concomitant]
     Dosage: 1 DF, QD
  13. METOPROLOL SUCCINATE [Concomitant]
     Dosage: 25 MG, QD

REACTIONS (2)
  - ABDOMINAL STRANGULATED HERNIA [None]
  - ABDOMINAL WALL DISORDER [None]
